FAERS Safety Report 15309730 (Version 1)
Quarter: 2018Q3

REPORT INFORMATION
  Report Type: Spontaneous
  Country: US (occurrence: US)
  Receive Date: 20180823
  Receipt Date: 20180823
  Transmission Date: 20181010
  Serious: Yes (Hospitalization)
  Sender: FDA-Public Use
  Company Number: US-MALLINCKRODT-T201703670

PATIENT
  Age: 80 Year
  Sex: Female

DRUGS (2)
  1. ROXICODONE [Suspect]
     Active Substance: OXYCODONE HYDROCHLORIDE
     Indication: PAIN
     Dosage: 15 MG, FOUR TIMES DAILY
     Route: 065
  2. NARCAN [Concomitant]
     Active Substance: NALOXONE HYDROCHLORIDE
     Indication: PRODUCT USED FOR UNKNOWN INDICATION

REACTIONS (1)
  - Overdose [Unknown]

NARRATIVE: CASE EVENT DATE: 201706
